FAERS Safety Report 6026445-4 (Version None)
Quarter: 2009Q1

REPORT INFORMATION
  Report Type: 
  Country: None (occurrence: None)
  Receive Date: 20090102
  Receipt Date: 20081223
  Transmission Date: 20090719
  Serious: Yes (Hospitalization, Other)
  Sender: FDA-Public Use
  Company Number: US-PFIZER INC-2005103656

PATIENT
  Sex: Female

DRUGS (5)
  1. TIKOSYN [Suspect]
     Indication: ATRIAL FIBRILLATION
     Route: 065
     Dates: start: 20050712
  2. COENZYME Q10 [Interacting]
     Indication: ARRHYTHMIA
     Route: 065
     Dates: start: 20060101
  3. KEFLEX [Concomitant]
     Indication: SKIN LACERATION
     Route: 065
     Dates: start: 20060101
  4. LOPRESSOR [Concomitant]
     Indication: ARRHYTHMIA
     Route: 048
  5. ATENOLOL [Concomitant]
     Route: 065
     Dates: start: 20060101

REACTIONS (15)
  - ASTHENIA [None]
  - ATRIAL FIBRILLATION [None]
  - DRUG INEFFECTIVE [None]
  - DRUG INTERACTION [None]
  - DYSPNOEA [None]
  - HEMICEPHALALGIA [None]
  - HYPERTENSION [None]
  - INTERVERTEBRAL DISC PROTRUSION [None]
  - MALAISE [None]
  - NASOPHARYNGITIS [None]
  - NEURECTOMY [None]
  - PAIN IN EXTREMITY [None]
  - PNEUMONIA [None]
  - PULMONARY VEIN STENOSIS [None]
  - SUPRAVENTRICULAR EXTRASYSTOLES [None]
